FAERS Safety Report 9688865 (Version 1)
Quarter: 2013Q4

REPORT INFORMATION
  Report Type: Spontaneous
  Country: US (occurrence: None)
  Receive Date: 20131113
  Receipt Date: 20131113
  Transmission Date: 20140711
  Serious: Yes (Other)
  Sender: FDA-Public Use
  Company Number: AEGR000201

PATIENT
  Age: 77 Year
  Sex: Male
  Weight: 79.8 kg

DRUGS (8)
  1. JUXTAPID [Suspect]
     Indication: TYPE IIA HYPERLIPIDAEMIA
     Route: 048
     Dates: start: 20130930, end: 20131030
  2. APRISO [Concomitant]
  3. PLAVIX [Concomitant]
  4. COREG (CARVEDILOL) [Concomitant]
  5. ASA (ACETYLSALICYLIC ACID) [Concomitant]
  6. FUROSEMIDE (FUROSEMIDE) [Concomitant]
  7. KCL [Concomitant]
  8. ZANTAC (RANITIDINE HYDROCHLORIDE) [Concomitant]

REACTIONS (1)
  - Rectal haemorrhage [None]
